FAERS Safety Report 21741927 (Version 1)
Quarter: 2022Q4

REPORT INFORMATION
  Report Type: Report from Study
  Country: AT (occurrence: AT)
  Receive Date: 20221216
  Receipt Date: 20221216
  Transmission Date: 20230113
  Serious: Yes (Other)
  Sender: FDA-Public Use
  Company Number: AT-ALNYLAM PHARMACEUTICALS, INC.-ALN-2022-004580

PATIENT

DRUGS (12)
  1. ONPATTRO [Suspect]
     Active Substance: PATISIRAN SODIUM
     Indication: Product used for unknown indication
     Dosage: 20 MILLIGRAM, Q3W
     Route: 065
     Dates: start: 20210201
  2. ONPATTRO [Suspect]
     Active Substance: PATISIRAN SODIUM
     Dosage: 20 MILLIGRAM, Q3W
     Route: 065
     Dates: start: 20210401
  3. ONPATTRO [Suspect]
     Active Substance: PATISIRAN SODIUM
     Dosage: 20 MILLIGRAM, Q3W
     Route: 065
     Dates: start: 20221115
  4. CELLCEPT [Concomitant]
     Active Substance: MYCOPHENOLATE MOFETIL
     Indication: Product used for unknown indication
     Dosage: 2X2, 500 MILLIGRAM, QD
     Route: 065
  5. ENVARSUS XR [Concomitant]
     Active Substance: TACROLIMUS
     Indication: Product used for unknown indication
     Dosage: 1X1, 1 MILLIGRAM, QD
     Route: 065
  6. ENVARSUS XR [Concomitant]
     Active Substance: TACROLIMUS
     Dosage: 1X1, 1 MILLIGRAM, QD
     Route: 065
  7. PREDNISOLONE [Concomitant]
     Active Substance: PREDNISOLONE
     Indication: Product used for unknown indication
     Dosage: 1X1, 5 MILLIGRAM, QD
     Route: 065
  8. ASPIRIN [Concomitant]
     Active Substance: ASPIRIN
     Indication: Product used for unknown indication
     Dosage: 1X2, 75 MILLIGRAM, QD
     Route: 065
  9. AMLODIPINE [Concomitant]
     Active Substance: AMLODIPINE BESYLATE
     Indication: Product used for unknown indication
     Dosage: 1X1, 5 MILLIGRAM, QD
     Route: 065
  10. ATORVASTATIN CALCIUM [Concomitant]
     Active Substance: ATORVASTATIN CALCIUM
     Indication: Product used for unknown indication
     Dosage: 1X1, 10 MILLIGRAM, QD
     Route: 065
  11. Lidaprim [Concomitant]
     Indication: Product used for unknown indication
     Dosage: 2X1, MON, WED, FRI
  12. PANTROLOC [Concomitant]
     Indication: Product used for unknown indication
     Dosage: 1X1, 20 MILLIGRAM, QD

REACTIONS (2)
  - Urinary tract infection [Recovering/Resolving]
  - Asthenia [Unknown]
